FAERS Safety Report 11184738 (Version 2)
Quarter: 2015Q3

REPORT INFORMATION
  Report Type: Report from Study
  Country: CA (occurrence: CA)
  Receive Date: 20150612
  Receipt Date: 20150814
  Transmission Date: 20151125
  Serious: Yes (Hospitalization, Other)
  Sender: FDA-Public Use
  Company Number: CA-ABBVIE-15K-028-1392042-00

PATIENT
  Age: 27 Year
  Sex: Male
  Weight: 66 kg

DRUGS (2)
  1. HUMIRA [Suspect]
     Active Substance: ADALIMUMAB
     Indication: CROHN^S DISEASE
     Route: 058
     Dates: start: 20140828, end: 201411
  2. HUMIRA [Suspect]
     Active Substance: ADALIMUMAB
     Route: 058
     Dates: start: 2014

REACTIONS (5)
  - Intestinal stenosis [Recovered/Resolved with Sequelae]
  - Drug dose omission [Recovered/Resolved]
  - Fear of injection [Unknown]
  - Intestinal fibrosis [Recovered/Resolved with Sequelae]
  - Small intestinal obstruction [Unknown]

NARRATIVE: CASE EVENT DATE: 2014
